FAERS Safety Report 5122940-0 (Version None)
Quarter: 2006Q4

REPORT INFORMATION
  Report Type: 
  Country: None (occurrence: None)
  Receive Date: 20061006
  Receipt Date: 20060919
  Transmission Date: 20070319
  Serious: Yes (Life-Threatening, Other)
  Sender: FDA-Public Use
  Company Number: 20060196

PATIENT
  Age: 73 Year
  Sex: Male

DRUGS (1)
  1. EPINEPHRINE [Suspect]
     Indication: EYE IRRIGATION
     Dosage: INTRAOCULAR
     Route: 031
     Dates: start: 20060905, end: 20060905

REACTIONS (1)
  - INJURY CORNEAL [None]
